FAERS Safety Report 23632025 (Version 1)
Quarter: 2024Q1

REPORT INFORMATION
  Report Type: Spontaneous
  Country: US (occurrence: None)
  Receive Date: 20240313
  Receipt Date: 20240313
  Transmission Date: 20240409
  Serious: Yes (Death, Hospitalization)
  Sender: FDA-Public Use
  Company Number: None

PATIENT
  Age: 71 Year
  Sex: Male

DRUGS (1)
  1. PIRFENIDONE [Suspect]
     Active Substance: PIRFENIDONE
     Indication: Interstitial lung disease
     Dosage: 267MG BID ORAL
     Route: 048
     Dates: start: 20230410, end: 20240110

REACTIONS (6)
  - Dyspnoea [None]
  - Fatigue [None]
  - Disorientation [None]
  - Pneumonia [None]
  - Interstitial lung disease [None]
  - Condition aggravated [None]

NARRATIVE: CASE EVENT DATE: 20240130
